FAERS Safety Report 10563277 (Version 1)
Quarter: 2014Q4

REPORT INFORMATION
  Report Type: Spontaneous
  Country: US (occurrence: None)
  Receive Date: 20141103
  Receipt Date: 20141103
  Transmission Date: 20150529
  Serious: Yes (Other)
  Sender: FDA-Public Use
  Company Number: None

PATIENT
  Age: 51 Year
  Sex: Female
  Weight: 72.58 kg

DRUGS (2)
  1. CEPHALEXIN. [Suspect]
     Active Substance: CEPHALEXIN
     Indication: INFECTION
     Dates: start: 20141018, end: 20141027
  2. CEPHALEXIN. [Suspect]
     Active Substance: CEPHALEXIN
     Indication: PROCEDURAL SITE REACTION
     Dates: start: 20141018, end: 20141027

REACTIONS (2)
  - Stomatitis [None]
  - Rash pruritic [None]

NARRATIVE: CASE EVENT DATE: 20141101
